FAERS Safety Report 19508756 (Version 3)
Quarter: 2021Q3

REPORT INFORMATION
  Report Type: Spontaneous
  Country: IN (occurrence: IN)
  Receive Date: 20210708
  Receipt Date: 20210828
  Transmission Date: 20211014
  Serious: Yes (Other)
  Sender: FDA-Public Use
  Company Number: IN-AMGEN-INDSP2021102681

PATIENT
  Age: 13 Year
  Sex: Male

DRUGS (2)
  1. XGEVA [Suspect]
     Active Substance: DENOSUMAB
     Indication: ENCHONDROMATOSIS
     Dosage: 120 MILLIGRAM
     Route: 058
  2. XGEVA [Suspect]
     Active Substance: DENOSUMAB
     Indication: OFF LABEL USE

REACTIONS (3)
  - Off label use [Unknown]
  - Vitamin D deficiency [Recovering/Resolving]
  - Myopathy [Recovering/Resolving]
